FAERS Safety Report 5842162-5 (Version None)
Quarter: 2008Q3

REPORT INFORMATION
  Report Type: 
  Country: None (occurrence: None)
  Receive Date: 20080812
  Receipt Date: 20080729
  Transmission Date: 20090109
  Serious: Yes (Hospitalization, Other)
  Sender: FDA-Public Use
  Company Number: US-ELI_LILLY_AND_COMPANY-US200806000915

PATIENT
  Sex: Female

DRUGS (9)
  1. FORTEO [Suspect]
     Indication: OSTEOPOROSIS
     Dosage: 20 UG, DAILY (1/D)
     Dates: start: 20070101, end: 20070626
  2. FORTEO [Suspect]
     Dosage: 20 UG, DAILY (1/D)
  3. CLINDAMYCIN HCL [Concomitant]
  4. HYDROCODONE BITARTRATE [Concomitant]
  5. IBUPROFEN [Concomitant]
  6. TYLENOL /USA/ [Concomitant]
  7. CALCIUM [Concomitant]
  8. ERGOCALCIFEROL [Concomitant]
  9. IRON [Concomitant]

REACTIONS (6)
  - DYSPNOEA [None]
  - IMPAIRED HEALING [None]
  - MIGRAINE [None]
  - MUSCLE SPASMS [None]
  - PAIN [None]
  - SLEEP APNOEA SYNDROME [None]
